FAERS Safety Report 14853212 (Version 27)
Quarter: 2022Q3

REPORT INFORMATION
  Report Type: Spontaneous
  Country: DE (occurrence: DE)
  Receive Date: 20180507
  Receipt Date: 20220822
  Transmission Date: 20221026
  Serious: Yes (Hospitalization)
  Sender: FDA-Public Use
  Company Number: DE-ADRED-00034-01

PATIENT
  Age: 62 Year
  Sex: Female
  Weight: 45 kg

DRUGS (105)
  1. PANTOZOL [Interacting]
     Active Substance: PANTOPRAZOLE SODIUM
     Dosage: 40 MG, QD (1-0-0-0)
     Route: 048
  2. PANTOZOL [Interacting]
     Active Substance: PANTOPRAZOLE SODIUM
     Dosage: (40 MILLIGRAM(S)) IN 1 DAY
  3. PANTOZOL [Interacting]
     Active Substance: PANTOPRAZOLE SODIUM
     Dosage: (40 MILLIGRAM(S)) IN 1 DAY
  4. PANTOZOL [Interacting]
     Active Substance: PANTOPRAZOLE SODIUM
     Dosage: (40 MILLIGRAM(S)) IN 1 DAY
  5. RAPAMUNE [Interacting]
     Active Substance: SIROLIMUS
     Dosage: 1 MG, QD (1-0-0-0)
     Route: 048
  6. RAPAMUNE [Interacting]
     Active Substance: SIROLIMUS
     Dosage: UNK
     Route: 048
  7. SIMVASTATIN [Interacting]
     Active Substance: SIMVASTATIN
     Dosage: 40 MG,QD (0-0-1-0)
     Route: 048
  8. SPIRIVA [Interacting]
     Active Substance: TIOTROPIUM BROMIDE MONOHYDRATE
     Dosage: 18 UG,BID(1-0-1-0 )
     Route: 055
  9. SPIRIVA [Interacting]
     Active Substance: TIOTROPIUM BROMIDE MONOHYDRATE
     Dosage: 36 UG, QD, 18 UG, BID (1-0-1-0)
     Route: 055
  10. SPIRIVA [Interacting]
     Active Substance: TIOTROPIUM BROMIDE MONOHYDRATE
     Dosage: 2 DF, QD
  11. SPIRIVA [Interacting]
     Active Substance: TIOTROPIUM BROMIDE MONOHYDRATE
     Dosage: 1 DF, QD
  12. FUROSEMIDE [Interacting]
     Active Substance: FUROSEMIDE
     Dosage: 40 MG,QD
     Route: 048
  13. FUROSEMIDE [Interacting]
     Active Substance: FUROSEMIDE
     Dosage: 160 MG, QD
     Route: 048
  14. FUROSEMIDE [Interacting]
     Active Substance: FUROSEMIDE
     Dosage: 40 MG EVERY 6 HOURS
     Route: 048
  15. FUROSEMIDE [Interacting]
     Active Substance: FUROSEMIDE
     Dosage: 160 MG, QD
     Route: 048
  16. FUROSEMIDE [Interacting]
     Active Substance: FUROSEMIDE
     Dosage: 40 MG,QD
     Route: 048
  17. BENSERAZIDE\LEVODOPA [Interacting]
     Active Substance: BENSERAZIDE\LEVODOPA
     Dosage: 100 MG, QD(100 MG 1-0-2.5-0)
     Route: 048
  18. BENSERAZIDE\LEVODOPA [Interacting]
     Active Substance: BENSERAZIDE\LEVODOPA
     Dosage: 100 MG, BID
     Route: 048
  19. CHOLECALCIFEROL [Interacting]
     Active Substance: CHOLECALCIFEROL
     Dosage: 100 OT, QD (100 IE, 1-0-0-0)
     Route: 048
  20. CHOLECALCIFEROL [Interacting]
     Active Substance: CHOLECALCIFEROL
     Dosage: UNK UNK, QD
     Route: 048
  21. CHOLECALCIFEROL [Interacting]
     Active Substance: CHOLECALCIFEROL
     Dosage: UNK UNK, QD
     Route: 048
  22. CHOLECALCIFEROL [Interacting]
     Active Substance: CHOLECALCIFEROL
     Dosage: 1 DF, QD
  23. CHOLECALCIFEROL [Interacting]
     Active Substance: CHOLECALCIFEROL
     Dosage: 100 UNK, QD
  24. CHOLECALCIFEROL [Interacting]
     Active Substance: CHOLECALCIFEROL
     Dosage: 100 IU, QD
  25. LACTULOSE [Interacting]
     Active Substance: LACTULOSE
     Dosage: 1 DF, QD
     Route: 048
  26. LACTULOSE [Interacting]
     Active Substance: LACTULOSE
     Dosage: 1 DF, QD, 1 MEASURING CUP
     Route: 048
  27. LACTULOSE [Interacting]
     Active Substance: LACTULOSE
     Dosage: UNK UNK, QD
     Route: 048
  28. EZETIMIBE [Interacting]
     Active Substance: EZETIMIBE
     Dosage: 10 MG,QD (10 MG,1-0-0-0)
     Route: 048
  29. FENTANYL [Interacting]
     Active Substance: FENTANYL
     Dosage: 50 UG, QD
     Route: 048
  30. FENTANYL [Interacting]
     Active Substance: FENTANYL
     Dosage: 50 UG, UNK
     Route: 047
  31. SPIRONOLACTONE [Interacting]
     Active Substance: SPIRONOLACTONE
     Dosage: 100 MG, QD
     Route: 048
  32. SPIRONOLACTONE [Interacting]
     Active Substance: SPIRONOLACTONE
     Dosage: 200 MG, QD
     Route: 048
  33. SPIRONOLACTONE [Interacting]
     Active Substance: SPIRONOLACTONE
     Dosage: 2 DF, QD
     Route: 048
  34. SPIRONOLACTONE [Interacting]
     Active Substance: SPIRONOLACTONE
     Dosage: 200 MG, QD,100 MG, BID (2-0-0-0)
     Route: 048
  35. SPIRONOLACTONE [Interacting]
     Active Substance: SPIRONOLACTONE
     Dosage: UNK
  36. SPIRONOLACTONE [Interacting]
     Active Substance: SPIRONOLACTONE
     Dosage: 200 MG, BID (EVERY 12 HOURS)
     Route: 048
  37. SPIRONOLACTONE [Interacting]
     Active Substance: SPIRONOLACTONE
     Dosage: 200 MILLIGRAM, BID
     Route: 048
  38. SPIRONOLACTONE [Interacting]
     Active Substance: SPIRONOLACTONE
     Dosage: 100 MG, BID
  39. URSODIOL [Interacting]
     Active Substance: URSODIOL
     Dosage: 500 MG, BID
     Route: 048
  40. URSODIOL [Interacting]
     Active Substance: URSODIOL
     Dosage: 1000 MILLIGRAM, QD
     Route: 048
  41. URSODIOL [Interacting]
     Active Substance: URSODIOL
     Dosage: 1000 MG, BID
     Route: 048
  42. FLUTICASONE PROPIONATE\SALMETEROL XINAFOATE [Interacting]
     Active Substance: FLUTICASONE PROPIONATE\SALMETEROL XINAFOATE
     Dosage: 1 DF, 1X/DAY(RESPIRATORY (INHALATION)50|500 UG, 1-0-1-0 )
     Route: 055
  43. FLUTICASONE PROPIONATE\SALMETEROL XINAFOATE [Interacting]
     Active Substance: FLUTICASONE PROPIONATE\SALMETEROL XINAFOATE
     Dosage: 2 DF, QD, 50|500 UG,
     Route: 055
  44. FLUTICASONE PROPIONATE\SALMETEROL XINAFOATE [Interacting]
     Active Substance: FLUTICASONE PROPIONATE\SALMETEROL XINAFOATE
     Dosage: 1 DF, QD
     Route: 055
  45. FLUTICASONE PROPIONATE\SALMETEROL XINAFOATE [Interacting]
     Active Substance: FLUTICASONE PROPIONATE\SALMETEROL XINAFOATE
     Dosage: UNK UNK, QD
     Route: 055
  46. AZATHIOPRINE [Interacting]
     Active Substance: AZATHIOPRINE
     Dosage: 50 MG, QD
     Route: 048
  47. AZATHIOPRINE [Interacting]
     Active Substance: AZATHIOPRINE
     Dosage: 50 MG, UNK
     Route: 048
  48. ESIDRIX [Interacting]
     Active Substance: HYDROCHLOROTHIAZIDE
     Dosage: 25 MG, QD (1-0-0-0)
     Route: 048
  49. METAMIZOLE [Interacting]
     Active Substance: METAMIZOLE
     Dosage: 30 TROPFEN, 1-1-1-0
     Route: 048
  50. METAMIZOLE [Interacting]
     Active Substance: METAMIZOLE
     Dosage: 30 OT, TID (30 TROPFEN, 1-1-1-0)
     Route: 048
  51. METAMIZOLE [Interacting]
     Active Substance: METAMIZOLE
     Dosage: 90 DF, QD, UNIT DOSE: 30 DROPS
     Route: 048
  52. METAMIZOLE [Interacting]
     Active Substance: METAMIZOLE
     Dosage: 30 GTT DROPS, Q8H
     Route: 048
  53. CITRIC ACID MONOHYDRATE\POTASSIUM BICARBONATE\POTASSIUM CITRATE [Interacting]
     Active Substance: CITRIC ACID MONOHYDRATE\POTASSIUM BICARBONATE\POTASSIUM CITRATE
     Dosage: 100 MG,QD(1-0-0-0)
     Route: 048
  54. CITRIC ACID MONOHYDRATE\POTASSIUM BICARBONATE\POTASSIUM CITRATE [Interacting]
     Active Substance: CITRIC ACID MONOHYDRATE\POTASSIUM BICARBONATE\POTASSIUM CITRATE
     Dosage: UNK
     Route: 048
  55. CITRIC ACID MONOHYDRATE\POTASSIUM BICARBONATE\POTASSIUM CITRATE [Interacting]
     Active Substance: CITRIC ACID MONOHYDRATE\POTASSIUM BICARBONATE\POTASSIUM CITRATE
     Dosage: 100 MILLIGRAM, QD
     Route: 048
  56. AMBROXOL HYDROCHLORIDE [Interacting]
     Active Substance: AMBROXOL HYDROCHLORIDE
     Dosage: 30 GTT, AS NEEDED (REQUIREMENT, BEDARFAS NECESSARY)
     Route: 048
  57. MAGNESIUM [Interacting]
     Active Substance: MAGNESIUM
     Dosage: 2 DF, DAILY(2-0-0-0)
     Route: 048
  58. MAGNESIUM [Interacting]
     Active Substance: MAGNESIUM
     Dosage: 1 DF, QD
  59. MAGNESIUM [Interacting]
     Active Substance: MAGNESIUM
     Dosage: UNK UNK, QD
     Route: 048
  60. BENSERAZIDE\LEVODOPA [Interacting]
     Active Substance: BENSERAZIDE\LEVODOPA
     Dosage: 100 MG, QD (1-0-2.5-0)
     Route: 048
  61. BENSERAZIDE\LEVODOPA [Interacting]
     Active Substance: BENSERAZIDE\LEVODOPA
     Dosage: 100 MG, EVERY 12 HOURS, BID
     Route: 048
  62. BENSERAZIDE\LEVODOPA [Interacting]
     Active Substance: BENSERAZIDE\LEVODOPA
     Dosage: 1 DF, QD
  63. MAGNESIUM [Interacting]
     Active Substance: MAGNESIUM
     Dosage: BID
     Route: 048
  64. MAGNESIUM [Interacting]
     Active Substance: MAGNESIUM
     Dosage: 1 DF, QD
     Route: 048
  65. MAGNESIUM [Interacting]
     Active Substance: MAGNESIUM
     Dosage: 2 OT, QD
     Route: 048
  66. MAGNESIUM [Interacting]
     Active Substance: MAGNESIUM
     Dosage: 2 DF, 1X/DAY
     Route: 048
  67. ACETAMINOPHEN\CAFFEINE\PROPYPHENAZONE [Interacting]
     Active Substance: ACETAMINOPHEN\CAFFEINE\PROPYPHENAZONE
     Dosage: QD
     Route: 048
  68. ACETAMINOPHEN\CAFFEINE\PROPYPHENAZONE [Interacting]
     Active Substance: ACETAMINOPHEN\CAFFEINE\PROPYPHENAZONE
     Dosage: UNK, TID
     Route: 048
  69. ACETAMINOPHEN\CAFFEINE\PROPYPHENAZONE [Interacting]
     Active Substance: ACETAMINOPHEN\CAFFEINE\PROPYPHENAZONE
     Dosage: 30 GTT, Q8HR
     Route: 048
  70. ACETAMINOPHEN\CAFFEINE\PROPYPHENAZONE [Interacting]
     Active Substance: ACETAMINOPHEN\CAFFEINE\PROPYPHENAZONE
     Dosage: 30 GTT DROPS, TID
     Route: 048
  71. ACETAMINOPHEN\CAFFEINE\PROPYPHENAZONE [Interacting]
     Active Substance: ACETAMINOPHEN\CAFFEINE\PROPYPHENAZONE
     Dosage: 30 GTT, Q8HR
     Route: 048
  72. MAGNESIUM [Interacting]
     Active Substance: MAGNESIUM
     Dosage: UNK UNK, BID
     Route: 048
  73. MAGNESIUM [Interacting]
     Active Substance: MAGNESIUM
     Dosage: 4.0 DOSAGE FORM (2 DOSAGE FORM),1 IN 12 HOUR
     Route: 048
  74. ACETAMINOPHEN\PENTAZOCINE HYDROCHLORIDE [Interacting]
     Active Substance: ACETAMINOPHEN\PENTAZOCINE HYDROCHLORIDE
     Dosage: 1 DF, QD
     Route: 048
  75. ACETAMINOPHEN\PENTAZOCINE HYDROCHLORIDE [Interacting]
     Active Substance: ACETAMINOPHEN\PENTAZOCINE HYDROCHLORIDE
     Dosage: 90 DF, QD, UNIT DOSE: 30 DROPS
     Route: 048
  76. ACETAMINOPHEN\PENTAZOCINE HYDROCHLORIDE [Interacting]
     Active Substance: ACETAMINOPHEN\PENTAZOCINE HYDROCHLORIDE
     Dosage: UNK UNK, QD
     Route: 048
  77. ALUMINUM HYDROXIDE\MAGNESIUM HYDROXIDE [Interacting]
     Active Substance: ALUMINUM HYDROXIDE\MAGNESIUM HYDROXIDE
     Dosage: 2 DF, QD
     Route: 048
  78. POTASSIUM CHLORIDE [Interacting]
     Active Substance: POTASSIUM CHLORIDE
     Dosage: 100 MG, QD
     Route: 048
  79. POTASSIUM CHLORIDE [Interacting]
     Active Substance: POTASSIUM CHLORIDE
     Dosage: 100 MG, QD (1-0-0-0)
     Route: 048
  80. ACETAMINOPHEN [Interacting]
     Active Substance: ACETAMINOPHEN
     Dosage: 90 DF, QD
     Route: 048
  81. ACETAMINOPHEN [Interacting]
     Active Substance: ACETAMINOPHEN
     Dosage: 30 GTT DROPS, TID
     Route: 048
  82. ACETAMINOPHEN [Interacting]
     Active Substance: ACETAMINOPHEN
     Dosage: UNK UNK, QD
     Route: 048
  83. PENTAZOCINE HYDROCHLORIDE [Suspect]
     Active Substance: PENTAZOCINE HYDROCHLORIDE
     Dosage: UNK UNK, QD
     Route: 048
  84. PENTAZOCINE HYDROCHLORIDE [Suspect]
     Active Substance: PENTAZOCINE HYDROCHLORIDE
     Dosage: 30 GTT DROPS, TID
     Route: 048
  85. PENTAZOCINE HYDROCHLORIDE [Suspect]
     Active Substance: PENTAZOCINE HYDROCHLORIDE
     Dosage: UNK UNK, 1X/DAY
     Route: 048
  86. PENTAZOCINE HYDROCHLORIDE [Suspect]
     Active Substance: PENTAZOCINE HYDROCHLORIDE
     Dosage: 90.0 DOSAGE FORM (90 DOSAGE FORM),1 IN 1 DAY
  87. PENTAZOCINE HYDROCHLORIDE [Suspect]
     Active Substance: PENTAZOCINE HYDROCHLORIDE
     Dosage: (1 DOSAGE FORM) IN 1 DAY
  88. AZATHIOPRINE [Suspect]
     Active Substance: AZATHIOPRINE
     Dosage: 50 MG, 1X/DAY
  89. FLUTICASONE PROPIONATE\SALMETEROL XINAFOATE [Suspect]
     Active Substance: FLUTICASONE PROPIONATE\SALMETEROL XINAFOATE
     Dosage: 1.0 DOSAGE FORM (1 DOSAGE FORM),1 IN 1 DAY
  90. FLUTICASONE PROPIONATE\SALMETEROL XINAFOATE [Suspect]
     Active Substance: FLUTICASONE PROPIONATE\SALMETEROL XINAFOATE
     Dosage: 2.0 DOSAGE FORM (2 DOSAGE FORM),1 IN 1 DAY
  91. BENSERAZIDE HYDROCHLORIDE [Suspect]
     Active Substance: BENSERAZIDE HYDROCHLORIDE
     Dosage: 100 MILLIGRAM(S)) IN 12 HOUR
  92. BENSERAZIDE HYDROCHLORIDE [Suspect]
     Active Substance: BENSERAZIDE HYDROCHLORIDE
     Dosage: 200.0 MILLIGRAM(S) (100 MILLIGRAM(S)),1 IN 12 HOUR
  93. BENSERAZIDE HYDROCHLORIDE [Suspect]
     Active Substance: BENSERAZIDE HYDROCHLORIDE
     Dosage: (100 MILLIGRAM(S))
  94. METAMIZOLE SODIUM [Suspect]
     Active Substance: METAMIZOLE SODIUM
     Dosage: 30 GTT DROPS, TID
  95. METAMIZOLE SODIUM [Suspect]
     Active Substance: METAMIZOLE SODIUM
     Dosage: 90.0 DROP(S) (30 DROP(S)),1 IN 8 HOUR
  96. ACETAMINOPHEN\CAFFEINE\PHENYLEPHRINE HYDROCHLORIDE [Suspect]
     Active Substance: ACETAMINOPHEN\CAFFEINE\PHENYLEPHRINE HYDROCHLORIDE
     Dosage: 30 GTT DROPS, Q8H
  97. ACETAMINOPHEN\CAFFEINE\PHENYLEPHRINE HYDROCHLORIDE [Suspect]
     Active Substance: ACETAMINOPHEN\CAFFEINE\PHENYLEPHRINE HYDROCHLORIDE
     Dosage: 30 GTT DROPS, TID
  98. MAGNESIUM CITRATE\MAGNESIUM OXIDE\PYRIDOXINE HYDROCHLORIDE [Suspect]
     Active Substance: MAGNESIUM CITRATE\MAGNESIUM OXIDE\PYRIDOXINE HYDROCHLORIDE
     Dosage: 1 DOSAGE FORM) IN 1 DAY
  99. MAGNESIUM CITRATE\MAGNESIUM OXIDE\PYRIDOXINE HYDROCHLORIDE [Suspect]
     Active Substance: MAGNESIUM CITRATE\MAGNESIUM OXIDE\PYRIDOXINE HYDROCHLORIDE
     Dosage: IN 12 HOUR
  100. MAGNESIUM CITRATE\MAGNESIUM OXIDE\PYRIDOXINE HYDROCHLORIDE [Suspect]
     Active Substance: MAGNESIUM CITRATE\MAGNESIUM OXIDE\PYRIDOXINE HYDROCHLORIDE
     Dosage: (2 DOSAGE FORM) IN 1 DAY
  101. HYDROCHLOROTHIAZIDE [Suspect]
     Active Substance: HYDROCHLOROTHIAZIDE
     Dosage: 25 MG, 1X/DAY
  102. SIROLIMUS [Suspect]
     Active Substance: SIROLIMUS
     Dosage: 1 MG, QD
  103. BENSERAZIDE HYDROCHLORIDE [Concomitant]
     Active Substance: BENSERAZIDE HYDROCHLORIDE
     Dosage: 100 MG, 2X/DAY
  104. FUROSEMIDE [Concomitant]
     Active Substance: FUROSEMIDE
     Dosage: 160 MG, 1X/DAY
  105. SIMVASTATIN [Concomitant]
     Active Substance: SIMVASTATIN
     Dosage: 40 MG, 1X/DAY

REACTIONS (3)
  - Product prescribing error [Unknown]
  - Drug interaction [Unknown]
  - General physical health deterioration [Unknown]

NARRATIVE: CASE EVENT DATE: 20150916
